FAERS Safety Report 20958910 (Version 1)
Quarter: 2022Q2

REPORT INFORMATION
  Report Type: Spontaneous
  Country: DE (occurrence: DE)
  Receive Date: 20220614
  Receipt Date: 20220614
  Transmission Date: 20220720
  Serious: Yes (Other)
  Sender: FDA-Public Use
  Company Number: DE-TASMAN PHARMA, INC.-2022TSM00084

PATIENT
  Age: 41 Year
  Sex: Female

DRUGS (8)
  1. CLOZAPINE [Suspect]
     Active Substance: CLOZAPINE
     Indication: Schizophrenia
     Dosage: 100-375 MG, 1X/DAY
     Route: 065
     Dates: start: 2014
  2. CLOZAPINE [Suspect]
     Active Substance: CLOZAPINE
     Dosage: 350 MG, 1X/DAY
     Route: 065
  3. CLOZAPINE [Suspect]
     Active Substance: CLOZAPINE
     Dosage: 400 MG, 1X/DAY
     Route: 065
  4. CARIPRAZINE [Suspect]
     Active Substance: CARIPRAZINE
     Indication: Schizophrenia
     Dosage: 1.5 MG, 1X/DAY
     Route: 065
  5. CARIPRAZINE [Suspect]
     Active Substance: CARIPRAZINE
     Dosage: 3 MG, 1X/DAY
     Route: 065
  6. CARIPRAZINE [Suspect]
     Active Substance: CARIPRAZINE
     Dosage: 6 MG, 1X/DAY
     Route: 065
  7. CARIPRAZINE [Suspect]
     Active Substance: CARIPRAZINE
     Dosage: UNK
  8. NORCLOZAPINE [Concomitant]
     Active Substance: NORCLOZAPINE

REACTIONS (3)
  - Schizophrenia [Recovered/Resolved]
  - Pleurothotonus [Recovered/Resolved]
  - Drug interaction [Recovered/Resolved]
